FAERS Safety Report 6339278-6 (Version None)
Quarter: 2009Q3

REPORT INFORMATION
  Report Type: 
  Country: None (occurrence: None)
  Receive Date: 20090903
  Receipt Date: 20090828
  Transmission Date: 20100115
  Serious: Yes (Hospitalization)
  Sender: FDA-Public Use
  Company Number: A0804861A

PATIENT
  Age: 58 Year
  Sex: Female

DRUGS (5)
  1. COREG [Suspect]
     Dosage: 3.125MG TWICE PER DAY
     Route: 048
     Dates: start: 20050101, end: 20050301
  2. COREG [Suspect]
     Dosage: 6.25MG TWICE PER DAY
     Route: 048
     Dates: start: 20050401
  3. XANAX [Concomitant]
  4. LEXAPRO [Concomitant]
     Dosage: 5MG PER DAY
  5. ASPIRIN [Concomitant]

REACTIONS (14)
  - CHEST DISCOMFORT [None]
  - CHEST PAIN [None]
  - COGNITIVE DISORDER [None]
  - ELECTROLYTE IMBALANCE [None]
  - HEART RATE IRREGULAR [None]
  - HUNGER [None]
  - HYPERHIDROSIS [None]
  - INCOHERENT [None]
  - MUSCLE SPASMS [None]
  - MYOCARDIAL INFARCTION [None]
  - OESOPHAGEAL SPASM [None]
  - POLLAKIURIA [None]
  - SOMNOLENCE [None]
  - URINE OUTPUT INCREASED [None]
